FAERS Safety Report 25901072 (Version 1)
Quarter: 2025Q4

REPORT INFORMATION
  Report Type: Spontaneous
  Country: EU (occurrence: EU)
  Receive Date: 20251009
  Receipt Date: 20251009
  Transmission Date: 20260119
  Serious: Yes (Other)
  Sender: RANBAXY
  Company Number: EU-AFSSAPS-PC2025000489

PATIENT
  Age: 21 Year
  Sex: Male

DRUGS (6)
  1. RISPERIDONE [Suspect]
     Active Substance: RISPERIDONE
     Indication: Schizophrenia
     Dosage: 2 MILLIGRAM, DAILY
     Route: 048
     Dates: start: 20250522, end: 20250526
  2. OLANZAPINE [Suspect]
     Active Substance: OLANZAPINE
     Indication: Schizophrenia
     Dosage: 10 MILLIGRAM, DAILY
     Route: 048
     Dates: start: 20250516, end: 20250526
  3. LOXAPINE [Suspect]
     Active Substance: LOXAPINE
     Indication: Agitation
     Dosage: 100 MILLIGRAM, DAILY
     Route: 048
     Dates: start: 20250516, end: 20250520
  4. CHLORPROMAZINE [Suspect]
     Active Substance: CHLORPROMAZINE
     Indication: Agitation
     Dosage: 400 MILLIGRAM, DAILY
     Route: 048
     Dates: start: 20250522, end: 20250526
  5. TRIMEPRAZINE [Suspect]
     Active Substance: TRIMEPRAZINE
     Indication: Insomnia
     Dosage: 20 MILLIGRAM, DAILY
     Route: 048
     Dates: start: 20250516, end: 20250601
  6. CYAMEMAZINE [Suspect]
     Active Substance: CYAMEMAZINE
     Indication: Agitation
     Dosage: UNK
     Route: 048
     Dates: start: 20250520, end: 20250522

REACTIONS (2)
  - Dysarthria [Recovered/Resolved]
  - Rhabdomyolysis [Recovering/Resolving]

NARRATIVE: CASE EVENT DATE: 20250526
